FAERS Safety Report 18134334 (Version 1)
Quarter: 2020Q3

REPORT INFORMATION
  Report Type: Spontaneous
  Country: US (occurrence: US)
  Receive Date: 20200807
  Receipt Date: 20200807
  Transmission Date: 20201103
  Serious: No
  Sender: FDA-Public Use
  Company Number: None

PATIENT
  Age: 51 Year
  Sex: Male

DRUGS (1)
  1. BOSENTAN 62.5 MG TABLETS 60/BO (TEVA) [Suspect]
     Active Substance: BOSENTAN
     Route: 048
     Dates: start: 20200807

REACTIONS (1)
  - Off label use [None]

NARRATIVE: CASE EVENT DATE: 20200807
